FAERS Safety Report 7079360-1 (Version None)
Quarter: 2010Q4

REPORT INFORMATION
  Report Type: 
  Country: None (occurrence: None)
  Receive Date: 20101102
  Receipt Date: 20101025
  Transmission Date: 20110411
  Serious: Yes (Hospitalization)
  Sender: FDA-Public Use
  Company Number: AT-B.I. PHARMACEUTICALS,INC./RIDGEFIELD-2010-DE-05476DE

PATIENT
  Sex: Female
  Weight: 70 kg

DRUGS (6)
  1. DABIGATRAN [Suspect]
     Indication: CEREBROVASCULAR ACCIDENT PROPHYLAXIS
     Dosage: BLINDED DOSE
     Route: 048
     Dates: start: 20071123, end: 20100927
  2. DABIGATRAN [Suspect]
     Indication: ATRIAL FIBRILLATION
  3. RAMIPRIL [Concomitant]
     Indication: HYPERTENSION
     Dosage: 10 MG
     Route: 048
  4. SIMVASTATIN [Concomitant]
     Indication: HYPERLIPIDAEMIA
     Dosage: 40 MG
     Route: 048
  5. BISOSTAD PLUS [Concomitant]
     Indication: HYPERTENSION
     Dosage: STENGTH AND DAILY DOSE: 5/12.5 MG
     Route: 048
  6. INSUMAN COMB [Concomitant]
     Indication: DIABETES MELLITUS
     Dosage: 40 IE (26-0-16 IE)

REACTIONS (1)
  - ISCHAEMIC STROKE [None]
